APPROVED DRUG PRODUCT: PRINCIPEN
Active Ingredient: AMPICILLIN/AMPICILLIN TRIHYDRATE
Strength: EQ 500MG BASE
Dosage Form/Route: CAPSULE;ORAL
Application: A062888 | Product #002
Applicant: APOTHECON INC DIV BRISTOL MYERS SQUIBB
Approved: Mar 4, 1988 | RLD: No | RS: No | Type: DISCN